FAERS Safety Report 4987113-0 (Version None)
Quarter: 2006Q2

REPORT INFORMATION
  Report Type: 
  Country: None (occurrence: None)
  Receive Date: 20060501
  Receipt Date: 20060420
  Transmission Date: 20061013
  Serious: Yes (Hospitalization)
  Sender: FDA-Public Use
  Company Number: US-JNJFOC-20060405836

PATIENT
  Sex: Female
  Weight: 52.62 kg

DRUGS (4)
  1. DURAGESIC-100 [Suspect]
     Route: 062
  2. DURAGESIC-100 [Suspect]
     Route: 062
  3. DURAGESIC-100 [Suspect]
     Route: 062
  4. DEPAKOTE [Concomitant]
     Indication: EPILEPSY
     Route: 048

REACTIONS (2)
  - MONOPLEGIA [None]
  - SCOLIOSIS [None]
